FAERS Safety Report 6636600-8 (Version None)
Quarter: 2010Q1

REPORT INFORMATION
  Report Type: 
  Country: None (occurrence: None)
  Receive Date: 20100316
  Receipt Date: 20100308
  Transmission Date: 20100710
  Serious: Yes (Hospitalization, Other)
  Sender: FDA-Public Use
  Company Number: US-MERCK-1002USA03488

PATIENT
  Age: 76 Year
  Sex: Female

DRUGS (4)
  1. HYZAAR [Suspect]
     Indication: HYPERTENSION
     Route: 048
     Dates: start: 20030101, end: 20080101
  2. HYZAAR [Suspect]
     Route: 048
     Dates: start: 20080101
  3. ATENOLOL [Concomitant]
     Route: 065
  4. PRAVACHOL [Concomitant]
     Route: 065

REACTIONS (2)
  - CHOLELITHIASIS [None]
  - PANCREATITIS [None]
